FAERS Safety Report 8962416 (Version 1)
Quarter: 2012Q4

REPORT INFORMATION
  Report Type: Report from Study
  Country: US (occurrence: US)
  Receive Date: 20121213
  Receipt Date: 20121213
  Transmission Date: 20130627
  Serious: Yes (Other)
  Sender: FDA-Public Use
  Company Number: US-BRISTOL-MYERS SQUIBB COMPANY-17173998

PATIENT
  Age: 59 Year
  Sex: Female

DRUGS (2)
  1. IPILIMUMAB [Suspect]
     Indication: MALIGNANT MELANOMA
  2. TEMOZOLOMIDE [Suspect]
     Indication: MALIGNANT MELANOMA

REACTIONS (1)
  - Neutropenia [Unknown]
